FAERS Safety Report 16914279 (Version 1)
Quarter: 2019Q4

REPORT INFORMATION
  Report Type: Spontaneous
  Country: US (occurrence: US)
  Receive Date: 20191014
  Receipt Date: 20191014
  Transmission Date: 20200122
  Serious: Yes (Hospitalization, Other)
  Sender: FDA-Public Use
  Company Number: US-DRREDDYS-USA/USA/19/0114957

PATIENT
  Age: 51 Year
  Sex: Female

DRUGS (12)
  1. TACROLIMUS. [Suspect]
     Active Substance: TACROLIMUS
     Indication: IMMUNOSUPPRESSANT DRUG THERAPY
     Dosage: TAC TROUGH LEVEL WAS REDUCED TO 6-7 NG/DL
     Route: 065
     Dates: start: 2016, end: 2016
  2. TACROLIMUS. [Interacting]
     Active Substance: TACROLIMUS
     Route: 065
     Dates: start: 2016, end: 2016
  3. PREDNISONE. [Concomitant]
     Active Substance: PREDNISONE
     Dates: start: 2016, end: 2016
  4. TACROLIMUS. [Interacting]
     Active Substance: TACROLIMUS
     Route: 065
     Dates: start: 2016, end: 2016
  5. MYCOPHENOLATE MOFETIL. [Interacting]
     Active Substance: MYCOPHENOLATE MOFETIL
     Indication: IMMUNOSUPPRESSANT DRUG THERAPY
     Route: 048
     Dates: start: 201512, end: 2016
  6. ANTITHYMOCYTE GLOBULIN [Suspect]
     Active Substance: THYMOCYTE IMMUNE GLOBULIN NOS
     Indication: IMMUNOSUPPRESSANT DRUG THERAPY
     Dosage: 3 DOSES OF 100 MG (1.5 MG/KG)
     Route: 042
     Dates: start: 201512
  7. PREDNISONE. [Concomitant]
     Active Substance: PREDNISONE
     Indication: IMMUNOSUPPRESSANT DRUG THERAPY
     Dosage: CONTINUED TO BE TAPERED
     Dates: start: 201512, end: 2016
  8. VALGANCICLOVIR. [Interacting]
     Active Substance: VALGANCICLOVIR
     Indication: ANTIVIRAL PROPHYLAXIS
     Route: 065
     Dates: start: 201512, end: 2016
  9. TACROLIMUS. [Interacting]
     Active Substance: TACROLIMUS
     Dosage: TARGET THE GOAL TROUGH OF 8-10 MG/DL
     Route: 065
     Dates: end: 2016
  10. TACROLIMUS. [Interacting]
     Active Substance: TACROLIMUS
     Dosage: TARGET TROUGH LEVEL OF 10-12 MG/DL
     Route: 065
     Dates: start: 201512, end: 2016
  11. SULFAMETHOXAZOLE W/TRIMETHOPRIM [Suspect]
     Active Substance: SULFAMETHOXAZOLE\TRIMETHOPRIM
     Indication: ANTIFUNGAL PROPHYLAXIS
     Dosage: 800 MG/160 MG
     Route: 065
     Dates: start: 201512, end: 2016
  12. MYCOPHENOLATE MOFETIL. [Interacting]
     Active Substance: MYCOPHENOLATE MOFETIL
     Route: 048
     Dates: start: 2016, end: 2016

REACTIONS (6)
  - Bone marrow toxicity [Recovered/Resolved]
  - Bone marrow failure [Recovered/Resolved]
  - Drug interaction [Recovered/Resolved]
  - Tremor [Unknown]
  - Hyperkalaemia [Unknown]
  - Neutropenia [Recovered/Resolved]

NARRATIVE: CASE EVENT DATE: 2016
